FAERS Safety Report 7319922-7 (Version None)
Quarter: 2011Q1

REPORT INFORMATION
  Report Type: 
  Country: None (occurrence: None)
  Receive Date: 20110228
  Receipt Date: 20110224
  Transmission Date: 20110831
  Serious: No
  Sender: FDA-Public Use
  Company Number: A0898590A

PATIENT
  Age: 50 Year
  Sex: Female

DRUGS (8)
  1. MULTI-VITAMIN [Concomitant]
  2. SYMBICORT [Concomitant]
  3. SENSODYNE-F [Concomitant]
  4. PRILOSEC [Concomitant]
  5. LAMICTAL [Suspect]
     Dosage: 500MG PER DAY
     Route: 048
     Dates: start: 19920101
  6. IMODIUM [Concomitant]
  7. ALLEGRA [Concomitant]
  8. VENTOLIN [Concomitant]

REACTIONS (1)
  - GINGIVAL RECESSION [None]
